FAERS Safety Report 6348530-X (Version None)
Quarter: 2009Q3

REPORT INFORMATION
  Report Type: 
  Country: None (occurrence: None)
  Receive Date: 20090911
  Receipt Date: 20090902
  Transmission Date: 20100115
  Serious: Yes (Other)
  Sender: FDA-Public Use
  Company Number: US-JNJFOC-20090901612

PATIENT
  Age: 57 Year
  Sex: Male

DRUGS (5)
  1. PREZISTA [Suspect]
     Indication: HIV INFECTION
     Route: 048
  2. RITONAVIR [Suspect]
     Indication: HIV INFECTION
     Route: 048
  3. EPZICOM [Suspect]
  4. EPZICOM [Suspect]
     Indication: HIV INFECTION
  5. KALETRA [Suspect]
     Indication: HIV INFECTION

REACTIONS (1)
  - ELECTROCARDIOGRAM QT PROLONGED [None]
